FAERS Safety Report 5014172-1 (Version None)
Quarter: 2006Q2

REPORT INFORMATION
  Report Type: 
  Country: None (occurrence: None)
  Receive Date: 20060414
  Receipt Date: 20060109
  Transmission Date: 20061013
  Serious: No
  Sender: FDA-Public Use
  Company Number: 2006SP000120

PATIENT
  Age: 7 Year
  Sex: Female
  Weight: 25.855 kg

DRUGS (2)
  1. LUNESTA [Suspect]
     Indication: PARASOMNIA
     Dosage: 2 MG; HS; ORAL
     Route: 048
     Dates: start: 20060107
  2. FOCALIN [Concomitant]

REACTIONS (1)
  - PARADOXICAL DRUG REACTION [None]
